FAERS Safety Report 22395769 (Version 1)
Quarter: 2023Q2

REPORT INFORMATION
  Report Type: Spontaneous
  Country: US (occurrence: US)
  Receive Date: 20230601
  Receipt Date: 20230601
  Transmission Date: 20230721
  Serious: No
  Sender: FDA-Public Use
  Company Number: US-APIL-2312296US

PATIENT
  Age: 58 Year
  Sex: Female
  Weight: 58.059 kg

DRUGS (3)
  1. BOTOX COSMETIC [Suspect]
     Active Substance: ONABOTULINUMTOXINA
     Indication: Skin wrinkling
     Dosage: 24 UNITS, SINGLE
     Route: 030
     Dates: start: 20230422, end: 20230422
  2. BOTOX COSMETIC [Suspect]
     Active Substance: ONABOTULINUMTOXINA
     Dosage: 26 UNITS, SINGLE
     Dates: start: 20230410, end: 20230410
  3. JUVEDERM [Suspect]
     Active Substance: HYALURONIC ACID
     Indication: Lip disorder
     Dosage: UNK
     Dates: start: 20230410, end: 20230410

REACTIONS (2)
  - Drug ineffective [Unknown]
  - Facial paralysis [Recovered/Resolved]

NARRATIVE: CASE EVENT DATE: 20230410
